FAERS Safety Report 19362092 (Version 1)
Quarter: 2021Q2

REPORT INFORMATION
  Report Type: Other
  Country: AR (occurrence: AR)
  Receive Date: 20210603
  Receipt Date: 20210603
  Transmission Date: 20210717
  Serious: Yes (Hospitalization)
  Sender: FDA-Public Use
  Company Number: AR-ROCHE-2841509

PATIENT
  Age: 72 Year
  Sex: Female

DRUGS (1)
  1. ACTILYSE [Suspect]
     Active Substance: ALTEPLASE
     Indication: CAROTID ARTERY STENOSIS
     Dosage: ENDOVENOUS
     Route: 042

REACTIONS (2)
  - Myocardial infarction [Recovering/Resolving]
  - Ischaemic stroke [Recovering/Resolving]
